FAERS Safety Report 20832465 (Version 2)
Quarter: 2022Q2

REPORT INFORMATION
  Report Type: Spontaneous
  Country: ES (occurrence: ES)
  Receive Date: 20220516
  Receipt Date: 20220601
  Transmission Date: 20220721
  Serious: Yes (Hospitalization, Other)
  Sender: FDA-Public Use
  Company Number: ES-NOVARTISPH-NVSC2022ES106676

PATIENT
  Age: 62 Year
  Sex: Female

DRUGS (25)
  1. LENALIDOMIDE [Suspect]
     Active Substance: LENALIDOMIDE
     Indication: Plasma cell myeloma
     Dosage: 25 MG (FREQUENCY TEXT: NOT PROVIDED)
     Route: 048
     Dates: start: 20210329, end: 20210329
  2. LENALIDOMIDE [Suspect]
     Active Substance: LENALIDOMIDE
     Dosage: 20 MG (FREQUENCY TEXT: NOT PROVIDED)
     Route: 048
     Dates: start: 20210504
  3. DEXAMETHASONE [Suspect]
     Active Substance: DEXAMETHASONE
     Indication: Plasma cell myeloma
     Dosage: 40 MG (FREQUENCY TEXT: NOT PROVIDED)
     Route: 065
     Dates: start: 20210329, end: 20210329
  4. DEXAMETHASONE [Suspect]
     Active Substance: DEXAMETHASONE
     Dosage: UNK (FREQUENCY TEXT: NOT PROVIDED)
     Route: 065
     Dates: start: 20210429
  5. ISATUXIMAB [Suspect]
     Active Substance: ISATUXIMAB
     Indication: Plasma cell myeloma
     Dosage: 510 MG (FREQUENCY TEXT: NOT PROVIDED)
     Route: 065
     Dates: start: 20210329, end: 20210329
  6. ISATUXIMAB [Suspect]
     Active Substance: ISATUXIMAB
     Dosage: UNK (FREQUENCY TEXT: NOT PROVIDED)
     Route: 065
     Dates: start: 20210429
  7. CARFILZOMIB [Suspect]
     Active Substance: CARFILZOMIB
     Indication: Plasma cell myeloma
     Dosage: 30 MG (FREQUENCY TEXT: NOT PROVIDED)
     Route: 065
     Dates: start: 20210329, end: 20210329
  8. CARFILZOMIB [Suspect]
     Active Substance: CARFILZOMIB
     Dosage: UNK (FREQUENCY TEXT: NOT PROVIDED)
     Route: 065
     Dates: start: 20210429
  9. SULFAMETHOXAZOLE\TRIMETHOPRIM [Concomitant]
     Active Substance: SULFAMETHOXAZOLE\TRIMETHOPRIM
     Indication: Prophylaxis
     Dosage: UNK (FREQUENCY TEXT: NOT PROVIDED)
     Route: 065
     Dates: start: 20210329
  10. ENOXAPARIN SODIUM [Concomitant]
     Active Substance: ENOXAPARIN SODIUM
     Indication: Prophylaxis
     Dosage: UNK (FREQUENCY TEXT: NOT PROVIDED)
     Route: 065
     Dates: start: 20210329, end: 20210728
  11. ACYCLOVIR [Concomitant]
     Active Substance: ACYCLOVIR
     Indication: Prophylaxis
     Dosage: UNK (FREQUENCY TEXT: NOT PROVIDED)
     Route: 065
     Dates: start: 20210329
  12. OMEPRAZOLE [Concomitant]
     Active Substance: OMEPRAZOLE
     Indication: Prophylaxis
     Dosage: UNK (FREQUENCY TEXT: NOT PROVIDED)
     Route: 065
     Dates: start: 20210329
  13. FOLIC ACID [Concomitant]
     Active Substance: FOLIC ACID
     Indication: Prophylaxis
     Dosage: UNK (FREQUENCY TEXT: NOT PROVIDED)
     Route: 065
     Dates: start: 20210329
  14. RANITIDINE [Concomitant]
     Active Substance: RANITIDINE
     Indication: Product used for unknown indication
     Dosage: UNK (FREQUENCY TEXT: NOT PROVIDED)
     Route: 065
     Dates: start: 20210603, end: 20210603
  15. PREDNISONE [Concomitant]
     Active Substance: PREDNISONE
     Indication: Prophylaxis
     Dosage: UNK
     Route: 065
     Dates: start: 20211004, end: 20211008
  16. PREDNISONE [Concomitant]
     Active Substance: PREDNISONE
     Indication: Premedication
     Dosage: UNK
     Route: 065
     Dates: start: 20211005, end: 20211005
  17. PREDNISONE [Concomitant]
     Active Substance: PREDNISONE
     Dosage: UNK
     Route: 065
     Dates: start: 20211008, end: 20211008
  18. PREDNISONE [Concomitant]
     Active Substance: PREDNISONE
     Dosage: UNK
     Route: 065
     Dates: start: 20211009, end: 20211013
  19. PENTAMIDINE [Concomitant]
     Active Substance: PENTAMIDINE
     Indication: Prophylaxis
     Dosage: UNK
     Route: 065
     Dates: start: 20210928, end: 20210930
  20. LEVOFLOXACIN [Concomitant]
     Active Substance: LEVOFLOXACIN
     Indication: Product used for unknown indication
     Dosage: UNK
     Route: 065
     Dates: start: 20210930
  21. FOLIC ACID [Concomitant]
     Active Substance: FOLIC ACID
     Indication: Product used for unknown indication
     Dosage: UNK
     Route: 065
     Dates: start: 20211006
  22. FLUCONAZOLE [Concomitant]
     Active Substance: FLUCONAZOLE
     Indication: Prophylaxis
     Dosage: UNK
     Route: 065
     Dates: start: 20210930
  23. EBASTINE [Concomitant]
     Active Substance: EBASTINE
     Indication: Product used for unknown indication
     Dosage: UNK (FREQUENCY TEXT: NOT PROVIDED)
     Route: 065
     Dates: start: 20210603
  24. DARBEPOETIN ALFA [Concomitant]
     Active Substance: DARBEPOETIN ALFA
     Indication: Prophylaxis
     Dosage: UNK
     Route: 065
     Dates: start: 20211006
  25. BECLOMETHASONE DIPROPIONATE [Concomitant]
     Active Substance: BECLOMETHASONE DIPROPIONATE
     Indication: Prophylaxis
     Dosage: UNK
     Route: 065
     Dates: start: 20211004, end: 20211013

REACTIONS (1)
  - Tubulointerstitial nephritis [Recovered/Resolved]

NARRATIVE: CASE EVENT DATE: 20210330
